FAERS Safety Report 17315630 (Version 2)
Quarter: 2021Q2

REPORT INFORMATION
  Report Type: Spontaneous
  Country: BR (occurrence: BR)
  Receive Date: 20200124
  Receipt Date: 20210629
  Transmission Date: 20210716
  Serious: Yes (Death)
  Sender: FDA-Public Use
  Company Number: BR-JNJFOC-20190727320

PATIENT
  Age: 72 Year
  Sex: Male

DRUGS (7)
  1. CEBRALAT [Concomitant]
     Active Substance: CILOSTAZOL
  2. DAPAGLIFLOZIN PROPANEDIOL MONOHYDRATE W/METFO [Concomitant]
  3. SIMPONI [Suspect]
     Active Substance: GOLIMUMAB
     Route: 058
     Dates: start: 20180122
  4. ROSUVASTATIN. [Concomitant]
     Active Substance: ROSUVASTATIN
  5. ANCORON [Concomitant]
     Active Substance: AMIODARONE HYDROCHLORIDE
  6. SIMPONI [Suspect]
     Active Substance: GOLIMUMAB
     Indication: ANKYLOSING SPONDYLITIS
     Route: 058
     Dates: start: 2016
  7. DIOVAN [Concomitant]
     Active Substance: VALSARTAN

REACTIONS (3)
  - Oesophageal carcinoma [Fatal]
  - Product dose omission issue [Unknown]
  - Drug delivery system malfunction [Unknown]

NARRATIVE: CASE EVENT DATE: 201905
